FAERS Safety Report 4457836-0 (Version None)
Quarter: 2004Q3

REPORT INFORMATION
  Report Type: 
  Country: None (occurrence: None)
  Receive Date: 20040924
  Receipt Date: 20040916
  Transmission Date: 20050211
  Serious: Yes (Life-Threatening, Hospitalization, Disabling, Other)
  Sender: FDA-Public Use
  Company Number: US-MERCK-0409USA01496

PATIENT
  Age: 78 Year
  Sex: Female

DRUGS (4)
  1. CIPRO [Concomitant]
     Route: 065
  2. CELEXA [Concomitant]
     Route: 065
  3. FLAGYL [Concomitant]
     Route: 065
  4. VIOXX [Suspect]
     Indication: ARTHRALGIA
     Route: 048
     Dates: start: 20040801, end: 20040901

REACTIONS (1)
  - BLOOD CREATININE INCREASED [None]
